FAERS Safety Report 25394501 (Version 1)
Quarter: 2025Q2

REPORT INFORMATION
  Report Type: Report from Study
  Country: US (occurrence: US)
  Receive Date: 20250604
  Receipt Date: 20250604
  Transmission Date: 20250716
  Serious: Yes (Other)
  Sender: ABBVIE
  Company Number: US-ABBVIE-6044128

PATIENT
  Age: 67 Year
  Sex: Female

DRUGS (1)
  1. RINVOQ [Suspect]
     Active Substance: UPADACITINIB
     Indication: Rheumatoid arthritis
     Route: 048
     Dates: start: 20230316

REACTIONS (9)
  - Amyotrophic lateral sclerosis [Not Recovered/Not Resolved]
  - Constipation [Recovering/Resolving]
  - Muscle atrophy [Unknown]
  - Peroneal nerve palsy [Not Recovered/Not Resolved]
  - Urinary tract infection [Recovering/Resolving]
  - Rectal haemorrhage [Unknown]
  - Nephrolithiasis [Recovering/Resolving]
  - Lumbar radiculopathy [Unknown]
  - Phlebitis [Unknown]

NARRATIVE: CASE EVENT DATE: 20250101
